FAERS Safety Report 21780904 (Version 1)
Quarter: 2022Q4

REPORT INFORMATION
  Report Type: Report from Study
  Country: GB (occurrence: GB)
  Receive Date: 20221227
  Receipt Date: 20221227
  Transmission Date: 20230112
  Serious: Yes (Hospitalization, Other)
  Sender: FDA-Public Use
  Company Number: GB-002147023-NVSC2022GB253516

PATIENT
  Sex: Female

DRUGS (1)
  1. HYRIMOZ [Suspect]
     Active Substance: ADALIMUMAB-ADAZ
     Indication: Rheumatoid arthritis
     Dosage: 40 MG, Q2W (EOW) (SANDOZ LTD) 2 PRE-FILLED DISPOSABLE INJECTION
     Route: 058

REACTIONS (2)
  - Femur fracture [Unknown]
  - Malaise [Not Recovered/Not Resolved]
